FAERS Safety Report 23402177 (Version 2)
Quarter: 2024Q1

REPORT INFORMATION
  Report Type: Report from Study
  Country: US (occurrence: US)
  Receive Date: 20240115
  Receipt Date: 20240117
  Transmission Date: 20240409
  Serious: Yes (Death)
  Sender: FDA-Public Use
  Company Number: US-OTSUKA-2024_000930

PATIENT
  Age: 78 Year
  Sex: Female

DRUGS (2)
  1. TOLVAPTAN [Suspect]
     Active Substance: TOLVAPTAN
     Indication: Hyponatraemia
     Dosage: 15 MG, QD
     Route: 048
     Dates: start: 20200224, end: 20240104
  2. CALCIUM\VITAMIN D [Concomitant]
     Active Substance: CALCIUM\VITAMIN D
     Indication: Product used for unknown indication
     Dosage: UNK (500 MG/200 UNIT)
     Route: 065

REACTIONS (2)
  - Death [Fatal]
  - Incorrect product administration duration [Unknown]

NARRATIVE: CASE EVENT DATE: 20200224
